FAERS Safety Report 24671593 (Version 1)
Quarter: 2024Q4

REPORT INFORMATION
  Report Type: Report from Study
  Country: US (occurrence: US)
  Receive Date: 20241127
  Receipt Date: 20241127
  Transmission Date: 20250114
  Serious: Yes (Other)
  Sender: PFIZER
  Company Number: US-PFIZER INC-202400308479

PATIENT
  Sex: Male

DRUGS (2)
  1. DOXORUBICIN HYDROCHLORIDE [Suspect]
     Active Substance: DOXORUBICIN HYDROCHLORIDE
     Indication: Desmoid tumour
     Dosage: 75 MG/M2, CYCLIC (6 CYCLES)
  2. DACARBAZINE [Suspect]
     Active Substance: DACARBAZINE
     Indication: Desmoid tumour
     Dosage: UNK, CYCLIC (6 CYCLES)

REACTIONS (2)
  - Abdominal pain [Unknown]
  - Embolism [Unknown]
